FAERS Safety Report 10463604 (Version 1)
Quarter: 2014Q3

REPORT INFORMATION
  Report Type: Spontaneous
  Country: CA (occurrence: CA)
  Receive Date: 20140919
  Receipt Date: 20140919
  Transmission Date: 20150326
  Serious: Yes (Life-Threatening, Disabling, Other)
  Sender: FDA-Public Use
  Company Number: CA-ROCHE-1462788

PATIENT
  Age: 54 Year
  Sex: Male

DRUGS (5)
  1. TACROLIMUS. [Suspect]
     Active Substance: TACROLIMUS
     Indication: PRODUCT USED FOR UNKNOWN INDICATION
     Route: 065
  2. MYCOPHENOLATE MOFETIL. [Suspect]
     Active Substance: MYCOPHENOLATE MOFETIL
     Indication: PRODUCT USED FOR UNKNOWN INDICATION
     Route: 065
  3. PROGRAF [Suspect]
     Active Substance: TACROLIMUS\TACROLIMUS ANHYDROUS
     Indication: PRODUCT USED FOR UNKNOWN INDICATION
     Route: 065
  4. SIMULECT [Concomitant]
     Active Substance: BASILIXIMAB
     Route: 042
  5. RAPAMUNE [Concomitant]
     Active Substance: SIROLIMUS

REACTIONS (5)
  - Pneumonia aspiration [Unknown]
  - Myoclonus [Unknown]
  - Pancytopenia [Unknown]
  - Osmotic demyelination syndrome [Unknown]
  - Locked-in syndrome [Unknown]
